FAERS Safety Report 7243604-3 (Version None)
Quarter: 2011Q1

REPORT INFORMATION
  Report Type: 
  Country: None (occurrence: None)
  Receive Date: 20110125
  Receipt Date: 20110114
  Transmission Date: 20110831
  Serious: Yes (Disabling)
  Sender: FDA-Public Use
  Company Number: PHHY2011US03556

PATIENT
  Sex: Female

DRUGS (3)
  1. GLEEVEC [Suspect]
     Indication: ACUTE LYMPHOCYTIC LEUKAEMIA
     Dosage: 600 MG, QD
     Route: 048
     Dates: start: 20100901
  2. METHOTREXATE [Concomitant]
     Route: 042
  3. CHEMOTHERAPEUTICS NOS [Concomitant]

REACTIONS (2)
  - NERVOUS SYSTEM DISORDER [None]
  - ATAXIA [None]
